FAERS Safety Report 24715736 (Version 1)
Quarter: 2024Q4

REPORT INFORMATION
  Report Type: Spontaneous
  Country: US (occurrence: US)
  Receive Date: 20241210
  Receipt Date: 20241210
  Transmission Date: 20250114
  Serious: Yes (Hospitalization, Other)
  Sender: GRANULES PHARMACEUTICALS INC
  Company Number: US-GRANULES-US-2024GRALIT00619

PATIENT
  Age: 68 Year
  Sex: Male

DRUGS (3)
  1. FLUOXETINE [Suspect]
     Active Substance: FLUOXETINE HYDROCHLORIDE
     Indication: Product used for unknown indication
     Route: 065
  2. BUPROPION\DEXTROMETHORPHAN [Suspect]
     Active Substance: BUPROPION\DEXTROMETHORPHAN
     Indication: Depressive symptom
     Route: 065
     Dates: start: 202308
  3. PRAZOSIN [Concomitant]
     Active Substance: PRAZOSIN
     Indication: Product used for unknown indication
     Route: 065

REACTIONS (20)
  - Serotonin syndrome [Unknown]
  - Urinary retention [Unknown]
  - Hallucinations, mixed [Unknown]
  - Encephalopathy [Unknown]
  - Flushing [Recovering/Resolving]
  - Chills [Unknown]
  - Confusional state [Recovering/Resolving]
  - Dysuria [Unknown]
  - Agitation [Unknown]
  - Paranoia [Unknown]
  - Anxiety [Unknown]
  - Mydriasis [Unknown]
  - Nystagmus [Unknown]
  - Hyperreflexia [Not Recovered/Not Resolved]
  - Clonus [Recovered/Resolved]
  - Disturbance in attention [Recovering/Resolving]
  - Dizziness [Recovering/Resolving]
  - Autonomic nervous system imbalance [Recovering/Resolving]
  - Toxicity to various agents [Unknown]
  - Drug interaction [Unknown]
